FAERS Safety Report 11472403 (Version 2)
Quarter: 2015Q3

REPORT INFORMATION
  Report Type: Spontaneous
  Country: US (occurrence: US)
  Receive Date: 20150908
  Receipt Date: 20150911
  Transmission Date: 20151125
  Serious: Yes (Hospitalization, Other)
  Sender: FDA-Public Use
  Company Number: US-009507513-1206USA03486

PATIENT
  Sex: Female

DRUGS (6)
  1. FOSAMAX [Suspect]
     Active Substance: ALENDRONATE SODIUM
     Dosage: 70 MG, UNK
     Route: 048
     Dates: start: 20010417, end: 2008
  2. VITAMINS (UNSPECIFIED) [Concomitant]
     Active Substance: VITAMINS
     Dosage: ONE DAILY
     Route: 065
     Dates: start: 1989
  3. ALENDRONATE SODIUM. [Suspect]
     Active Substance: ALENDRONATE SODIUM
     Indication: BONE DENSITY DECREASED
     Route: 048
  4. FOSAMAX [Suspect]
     Active Substance: ALENDRONATE SODIUM
     Indication: BONE DENSITY DECREASED
     Dosage: 10 MG, UNK
     Route: 048
     Dates: start: 20000914, end: 20010309
  5. RECLAST [Suspect]
     Active Substance: ZOLEDRONIC ACID
     Indication: BONE DENSITY DECREASED
     Dosage: UNK
     Route: 065
     Dates: start: 200804, end: 2010
  6. VITAMIN E [Concomitant]
     Active Substance: .ALPHA.-TOCOPHEROL
     Dosage: ONE DAILY
     Route: 048
     Dates: start: 1989

REACTIONS (15)
  - Cataract [Unknown]
  - Surgery [Unknown]
  - Hypokalaemia [Unknown]
  - Femur fracture [Recovering/Resolving]
  - Rotator cuff repair [Unknown]
  - Hypertension [Unknown]
  - Cholecystectomy [Unknown]
  - Trigger finger [Unknown]
  - Fall [Unknown]
  - Intestinal resection [Unknown]
  - Lipoma [Unknown]
  - Foot fracture [Unknown]
  - Gastrooesophageal reflux disease [Unknown]
  - Dehydration [Unknown]
  - Diverticulitis [Unknown]

NARRATIVE: CASE EVENT DATE: 2000
